FAERS Safety Report 18646231 (Version 1)
Quarter: 2020Q4

REPORT INFORMATION
  Report Type: Spontaneous
  Country: US (occurrence: US)
  Receive Date: 20201222
  Receipt Date: 20201222
  Transmission Date: 20210114
  Serious: No
  Sender: FDA-Public Use
  Company Number: US-APOTEX-2020AP023511

PATIENT
  Age: 97 Year
  Sex: Female

DRUGS (3)
  1. BUDESONIDE NASAL SPRAY [Suspect]
     Active Substance: BUDESONIDE
     Indication: PRODUCT USED FOR UNKNOWN INDICATION
     Dosage: UNK
     Route: 045
  2. PREDNISONE. [Concomitant]
     Active Substance: PREDNISONE
     Indication: RHEUMATIC DISORDER
     Dosage: UNK
     Route: 065
  3. BABY ASPIRIN [Concomitant]
     Active Substance: ASPIRIN
     Indication: THROMBOSIS
     Dosage: UNK
     Route: 065

REACTIONS (7)
  - Sneezing [Unknown]
  - Dysphonia [Unknown]
  - Rhinorrhoea [Unknown]
  - Prescription drug used without a prescription [Unknown]
  - Headache [Unknown]
  - Product advertising issue [Unknown]
  - Nasal discomfort [Unknown]
